FAERS Safety Report 21879389 (Version 7)
Quarter: 2023Q2

REPORT INFORMATION
  Report Type: Report from Study
  Country: US (occurrence: US)
  Receive Date: 20230118
  Receipt Date: 20230506
  Transmission Date: 20230722
  Serious: No
  Sender: FDA-Public Use
  Company Number: US-002147023-NVSC2023US008749

PATIENT
  Age: 37 Year
  Sex: Female

DRUGS (3)
  1. COSENTYX [Suspect]
     Active Substance: SECUKINUMAB
     Indication: Psoriatic arthropathy
     Dosage: 300 MG, QW (Q WEEK FOR FIVE WEEKS AND THEN Q FOUR WEEK)
     Route: 058
     Dates: start: 20230102
  2. COSENTYX [Suspect]
     Active Substance: SECUKINUMAB
     Dosage: UNK (COMPLETED 2 MONTHLY DOSE WITH THE SECOND ON 26 JAN) (X2)
     Route: 065
  3. PREDNISONE [Concomitant]
     Active Substance: PREDNISONE
     Indication: Product used for unknown indication
     Dosage: UNK (IN JANUARY)
     Route: 065

REACTIONS (4)
  - Injection site bruising [Unknown]
  - Arthralgia [Recovered/Resolved]
  - Inflammation [Recovering/Resolving]
  - Pain in extremity [Recovering/Resolving]

NARRATIVE: CASE EVENT DATE: 20230113
